FAERS Safety Report 17682533 (Version 5)
Quarter: 2020Q3

REPORT INFORMATION
  Report Type: Spontaneous
  Country: AT (occurrence: AT)
  Receive Date: 20200418
  Receipt Date: 20200704
  Transmission Date: 20201102
  Serious: Yes (Death, Other)
  Sender: FDA-Public Use
  Company Number: NVSC2020AT104103

PATIENT
  Age: 60 Year
  Sex: Male

DRUGS (14)
  1. DOXORUBICIN [Suspect]
     Active Substance: DOXORUBICIN
     Indication: SPLENIC MARGINAL ZONE LYMPHOMA
     Dosage: UNK , CYCLIC
     Route: 065
  2. CYCLOPHOSPHAMIDE. [Suspect]
     Active Substance: CYCLOPHOSPHAMIDE
     Indication: SPLENIC MARGINAL ZONE LYMPHOMA
     Dosage: UNK, CYCLIC
     Route: 065
  3. VINCRISTINE [Suspect]
     Active Substance: VINCRISTINE
     Indication: SPLENIC MARGINAL ZONE LYMPHOMA STAGE IV
  4. CLOPIDOGREL [Concomitant]
     Active Substance: CLOPIDOGREL BISULFATE
     Indication: PRODUCT USED FOR UNKNOWN INDICATION
     Dosage: UNK
     Route: 065
  5. RITUXIMAB. [Suspect]
     Active Substance: RITUXIMAB
     Indication: SPLENIC MARGINAL ZONE LYMPHOMA
     Dosage: UNK, CYCLIC
     Route: 065
  6. RITUXIMAB. [Suspect]
     Active Substance: RITUXIMAB
     Indication: SPLENIC MARGINAL ZONE LYMPHOMA STAGE IV
  7. CYCLOPHOSPHAMIDE. [Suspect]
     Active Substance: CYCLOPHOSPHAMIDE
     Indication: SPLENIC MARGINAL ZONE LYMPHOMA STAGE IV
  8. VINCRISTINE [Suspect]
     Active Substance: VINCRISTINE
     Indication: SPLENIC MARGINAL ZONE LYMPHOMA
     Dosage: UNK, CYCLIC
     Route: 065
  9. FILGRASTIM [Concomitant]
     Active Substance: FILGRASTIM
     Indication: FEBRILE NEUTROPENIA
     Dosage: 2  MULTIPLY 30 MIO U
     Route: 065
  10. PREDNISONE. [Suspect]
     Active Substance: PREDNISONE
     Indication: SPLENIC MARGINAL ZONE LYMPHOMA STAGE IV
  11. DOXORUBICIN [Suspect]
     Active Substance: DOXORUBICIN
     Indication: SPLENIC MARGINAL ZONE LYMPHOMA STAGE IV
  12. FILGRASTIM [Concomitant]
     Active Substance: FILGRASTIM
     Indication: SPLENIC MARGINAL ZONE LYMPHOMA
  13. PREDNISONE. [Suspect]
     Active Substance: PREDNISONE
     Indication: SPLENIC MARGINAL ZONE LYMPHOMA
     Dosage: UNK, CYCLIC
     Route: 065
  14. ACETYLSALICYLIC ACID [Concomitant]
     Active Substance: ASPIRIN
     Indication: PRODUCT USED FOR UNKNOWN INDICATION
     Dosage: UNK
     Route: 065

REACTIONS (20)
  - Hypoaesthesia [Fatal]
  - Headache [Fatal]
  - Drug ineffective [Fatal]
  - Thalamic infarction [Fatal]
  - Epilepsy [Fatal]
  - Central nervous system vasculitis [Fatal]
  - Pyrexia [Fatal]
  - Disturbance in attention [Fatal]
  - Sinusitis [Fatal]
  - Viral vasculitis [Fatal]
  - Confusional state [Fatal]
  - Febrile neutropenia [Fatal]
  - Asthenia [Fatal]
  - Herpes virus infection [Fatal]
  - Splenic marginal zone lymphoma [Unknown]
  - Ischaemic stroke [Fatal]
  - Herpes simplex [Fatal]
  - Malignant neoplasm progression [Unknown]
  - Herpes simplex encephalitis [Fatal]
  - Lymphopenia [Fatal]
